FAERS Safety Report 24619198 (Version 1)
Quarter: 2024Q4

REPORT INFORMATION
  Report Type: Report from Study
  Country: GB (occurrence: GB)
  Receive Date: 20241114
  Receipt Date: 20241114
  Transmission Date: 20250114
  Serious: Yes (Other)
  Sender: NOVARTIS
  Company Number: GB-002147023-NVSC2023GB151999

PATIENT
  Sex: Male

DRUGS (1)
  1. MAYZENT [Suspect]
     Active Substance: SIPONIMOD
     Indication: Secondary progressive multiple sclerosis
     Dosage: UNK UNK, QD
     Route: 048
     Dates: start: 20220228

REACTIONS (4)
  - Skin cancer [Not Recovered/Not Resolved]
  - Urinary tract infection [Recovering/Resolving]
  - Dry skin [Not Recovered/Not Resolved]
  - Erythema [Unknown]
